FAERS Safety Report 6712234-1 (Version None)
Quarter: 2010Q2

REPORT INFORMATION
  Report Type: 
  Country: None (occurrence: None)
  Receive Date: 20100505
  Receipt Date: 20100423
  Transmission Date: 20101027
  Serious: Yes (Hospitalization)
  Sender: FDA-Public Use
  Company Number: JP-PFIZER INC-2009308718

PATIENT
  Age: 67 Year
  Sex: Female
  Weight: 40.5 kg

DRUGS (48)
  1. MIGLITOL [Suspect]
     Indication: DIABETES MELLITUS
     Dosage: 50 MG, 3X/DAY
     Route: 048
     Dates: start: 20090419, end: 20090517
  2. MIGLITOL [Suspect]
     Dosage: 150 MG, UNK
     Route: 048
     Dates: start: 20090419, end: 20090518
  3. NORVASC [Suspect]
     Indication: HYPERTENSION
     Dosage: 5 MG, 2X/DAY
     Route: 048
     Dates: start: 20090419, end: 20090518
  4. NORVASC [Suspect]
     Dosage: UNK
     Route: 048
     Dates: start: 19950101, end: 20090418
  5. ALDACTONE [Suspect]
     Indication: HYPERTENSION
     Dosage: UNK
     Route: 048
     Dates: start: 20090417, end: 20090518
  6. CLOPIDOGREL BISULFATE [Suspect]
     Indication: ANGINA PECTORIS
     Dosage: 75 MG, UNK
     Route: 048
     Dates: start: 20090417, end: 20090518
  7. CLOPIDOGREL BISULFATE [Suspect]
     Indication: PERCUTANEOUS CORONARY INTERVENTION
     Dosage: 300 MG, UNK
     Route: 048
     Dates: start: 20090416, end: 20090416
  8. ASPIRIN [Suspect]
     Indication: ANGINA PECTORIS
     Dosage: UNK MG, UNK
     Route: 048
     Dates: start: 20090415
  9. AMARYL [Suspect]
     Indication: DIABETES MELLITUS
     Dosage: UNK MG, UNK
     Route: 048
     Dates: start: 20090422, end: 20090517
  10. TAKEPRON [Suspect]
     Indication: GASTRITIS PROPHYLAXIS
     Dosage: UNK
     Route: 048
     Dates: start: 20090415, end: 20090514
  11. MICARDIS [Suspect]
     Indication: HYPERTENSION
     Dosage: UNK
     Route: 048
     Dates: start: 20090415, end: 20090517
  12. COVERSYL [Suspect]
     Indication: HYPERTENSION
     Dosage: UNK
     Route: 048
     Dates: start: 20090416, end: 20090518
  13. CRESTOR [Suspect]
     Indication: HYPERCHOLESTEROLAEMIA
     Dosage: UNK
     Route: 048
     Dates: start: 20090415, end: 20090514
  14. SIGMART [Suspect]
     Indication: HYPERTENSION
     Dosage: 5 MG, 3X/DAY
     Route: 048
     Dates: start: 20090416, end: 20090518
  15. ARTIST [Suspect]
     Indication: HYPERTENSION
     Dosage: 2.5 MG, 2X/DAY
     Route: 048
     Dates: start: 20090419, end: 20090518
  16. ARTIST [Suspect]
     Dosage: UNK
     Route: 048
     Dates: start: 20090416, end: 20090418
  17. VEEN-F [Concomitant]
     Dosage: UNK
     Dates: start: 20090415, end: 20090420
  18. HEPARIN SODIUM [Concomitant]
     Dosage: UNK
     Dates: start: 20090415, end: 20090420
  19. HEPARIN SODIUM [Concomitant]
     Dosage: UNK
     Dates: start: 20090416, end: 20090416
  20. PANALDINE [Concomitant]
  21. PARIET [Concomitant]
  22. VOGLIBOSE [Concomitant]
  23. NU LOTAN [Concomitant]
  24. ADALAT CC [Concomitant]
  25. PURSENNID [Concomitant]
  26. MAGNESIUM OXIDE [Concomitant]
  27. SULPERAZON [Concomitant]
  28. ISOTONIC SOLUTIONS [Concomitant]
  29. CEFZON [Concomitant]
  30. NITROGLYCERIN [Concomitant]
     Dosage: UNK
     Dates: start: 20090415, end: 20090419
  31. NITROGLYCERIN [Concomitant]
     Dosage: UNK
     Dates: start: 20090416, end: 20090416
  32. ATROPINE [Concomitant]
  33. PRIMPERAN TAB [Concomitant]
  34. XYLOCAINE [Concomitant]
  35. IOPAMIDOL [Concomitant]
  36. ACETYLSALICYLIC ACID [Concomitant]
     Dosage: UNK
     Dates: start: 20090415
  37. CARVEDILOL [Concomitant]
     Dosage: UNK
     Dates: start: 20090416, end: 20090418
  38. BROTIZOLAM [Concomitant]
     Dosage: UNK
     Dates: start: 20090417, end: 20090417
  39. PENTAZOCINE [Concomitant]
     Dosage: UNK
     Dates: start: 20090417, end: 20090417
  40. INSULIN HUMAN [Concomitant]
     Dosage: UNK
     Dates: start: 20090417, end: 20090418
  41. GLYCERYL TRINITRATE [Concomitant]
     Dosage: UNK
     Dates: start: 20090417, end: 20090419
  42. GLYCERYL TRINITRATE [Concomitant]
     Dosage: UNK
     Dates: start: 20090416, end: 20090416
  43. NICORANDIL [Concomitant]
     Dosage: UNK
     Dates: start: 20090416, end: 20090518
  44. METOCLOPRAMIDE [Concomitant]
     Dosage: UNK
     Dates: start: 20090416, end: 20090416
  45. IOPAMIDOL [Concomitant]
     Dosage: UNK
     Dates: start: 20090416, end: 20090416
  46. GLUCOSE [Concomitant]
     Dosage: UNK
     Route: 051
     Dates: start: 20090415, end: 20090419
  47. LIDOCAINE HYDROCHLORIDE [Concomitant]
     Dosage: UNK
     Dates: start: 20090416, end: 20090416
  48. INVESTIGATIONAL DRUG [Concomitant]
     Dosage: UNK
     Dates: end: 20090416

REACTIONS (2)
  - HEPATOCELLULAR INJURY [None]
  - IN-STENT CORONARY ARTERY RESTENOSIS [None]
